FAERS Safety Report 9957563 (Version 1)
Quarter: 2014Q1

REPORT INFORMATION
  Report Type: Report from Study
  Country: US (occurrence: US)
  Receive Date: 20140304
  Receipt Date: 20140304
  Transmission Date: 20141002
  Serious: No
  Sender: FDA-Public Use
  Company Number: US-ABBVIE-13P-163-1095909-00

PATIENT
  Age: 34 Year
  Sex: Male

DRUGS (4)
  1. HUMIRA [Suspect]
     Indication: CROHN^S DISEASE
     Dates: start: 201303
  2. HUMIRA [Suspect]
  3. ASACOL [Concomitant]
     Indication: PROPHYLAXIS
  4. MESALINE [Concomitant]
     Indication: PROPHYLAXIS
     Dosage: EVERY NIGHT

REACTIONS (2)
  - Drug effect incomplete [Recovered/Resolved]
  - Therapy change [Recovered/Resolved]
